FAERS Safety Report 9165946 (Version 2)
Quarter: 2019Q2

REPORT INFORMATION
  Report Type: Report from Study
  Country: CA (occurrence: CA)
  Receive Date: 20130315
  Receipt Date: 20190509
  Transmission Date: 20190711
  Serious: Yes (Other)
  Sender: FDA-Public Use
  Company Number: CA-JNJFOC-20130301556

PATIENT
  Sex: Female
  Weight: 59 kg

DRUGS (3)
  1. IMURAN [Concomitant]
     Active Substance: AZATHIOPRINE
     Route: 065
  2. REMICADE [Suspect]
     Active Substance: INFLIXIMAB
     Indication: CROHN^S DISEASE
     Route: 042
  3. REMICADE [Suspect]
     Active Substance: INFLIXIMAB
     Indication: CROHN^S DISEASE
     Route: 042
     Dates: start: 20190502

REACTIONS (1)
  - Surgery [Unknown]
